FAERS Safety Report 18717330 (Version 2)
Quarter: 2021Q1

REPORT INFORMATION
  Report Type: Report from Study
  Country: DE (occurrence: DE)
  Receive Date: 20210108
  Receipt Date: 20210327
  Transmission Date: 20210419
  Serious: Yes (Hospitalization)
  Sender: FDA-Public Use
  Company Number: NVSC2020DE347890

PATIENT
  Sex: Male
  Weight: 88 kg

DRUGS (8)
  1. ATORVASTATIN [Suspect]
     Active Substance: ATORVASTATIN
     Indication: PRODUCT USED FOR UNKNOWN INDICATION
     Dosage: 60 MG, QD (1?0?0)
     Route: 048
     Dates: start: 201806
  2. CEFTRIAXONE. [Concomitant]
     Active Substance: CEFTRIAXONE
     Indication: PRODUCT USED FOR UNKNOWN INDICATION
     Route: 042
  3. TAMSULOSIN [Concomitant]
     Active Substance: TAMSULOSIN
     Indication: MICTURITION DISORDER
     Dosage: 0.4 MG, QD (1?0?0)
     Route: 065
  4. CIPROFLOXACIN. [Concomitant]
     Active Substance: CIPROFLOXACIN
     Indication: PRODUCT USED FOR UNKNOWN INDICATION
     Dosage: 500 MG, BID (1?0?1 FOR ANOTHER 10 DAYS)
     Route: 065
  5. IBUPROFEN. [Concomitant]
     Active Substance: IBUPROFEN
     Indication: PRODUCT USED FOR UNKNOWN INDICATION
     Dosage: 400 MG, BID (1?0?1)
     Route: 065
  6. COSENTYX [Suspect]
     Active Substance: SECUKINUMAB
     Indication: PSORIASIS
     Dosage: 150 MG, Q4W
     Route: 058
     Dates: start: 20171108
  7. CEFPODOXIME [Concomitant]
     Active Substance: CEFPODOXIME
     Indication: PRODUCT USED FOR UNKNOWN INDICATION
     Route: 048
  8. PANTOZOL [Concomitant]
     Active Substance: PANTOPRAZOLE SODIUM
     Indication: PRODUCT USED FOR UNKNOWN INDICATION
     Dosage: 20 MG, QD (1?0?0)
     Route: 065

REACTIONS (25)
  - Psoriasis [Unknown]
  - C-reactive protein increased [Unknown]
  - Bladder neck obstruction [Unknown]
  - Nephrolithiasis [Recovered/Resolved]
  - Epididymitis [Unknown]
  - Hypercholesterolaemia [Unknown]
  - Leukocytosis [Unknown]
  - Prostatitis [Unknown]
  - Scrotal pain [Unknown]
  - Nephrolithiasis [Recovered/Resolved]
  - Chills [Unknown]
  - Nephrolithiasis [Recovered/Resolved]
  - Leukocyturia [Unknown]
  - Cystitis [Unknown]
  - Hydronephrosis [Unknown]
  - Urinary tract infection [Unknown]
  - Urine abnormality [Unknown]
  - Benign prostatic hyperplasia [Unknown]
  - Abdominal pain upper [Unknown]
  - Bladder hypertrophy [Unknown]
  - Ureterolithiasis [Unknown]
  - Pyrexia [Unknown]
  - Urinary tract disorder [Unknown]
  - Flank pain [Unknown]
  - Prostatic obstruction [Unknown]

NARRATIVE: CASE EVENT DATE: 20190902
